FAERS Safety Report 6311333-6 (Version None)
Quarter: 2009Q3

REPORT INFORMATION
  Report Type: 
  Country: None (occurrence: None)
  Receive Date: 20090817
  Receipt Date: 20090805
  Transmission Date: 20100115
  Serious: Yes (Other)
  Sender: FDA-Public Use
  Company Number: PHHY2009US32781

PATIENT
  Age: 15 Year
  Sex: Male

DRUGS (2)
  1. TEGRETOL [Suspect]
     Dosage: UNK
  2. RISPERDAL [Concomitant]
     Dosage: UNK

REACTIONS (10)
  - HYPERKERATOSIS [None]
  - KOEBNER PHENOMENON [None]
  - LICHEN PLANUS [None]
  - LICHENOID KERATOSIS [None]
  - LYMPHOCYTOSIS [None]
  - MOUTH ULCERATION [None]
  - MUCOSAL INFLAMMATION [None]
  - ORAL DISORDER [None]
  - ORAL MUCOSA EROSION [None]
  - PAIN [None]
